FAERS Safety Report 10222971 (Version 1)
Quarter: 2014Q2

REPORT INFORMATION
  Report Type: Spontaneous
  Country: US (occurrence: US)
  Receive Date: 20140607
  Receipt Date: 20140607
  Transmission Date: 20141212
  Serious: Yes (Other)
  Sender: FDA-Public Use
  Company Number: CHPA2014US007704

PATIENT
  Age: 63 Year
  Sex: Female

DRUGS (3)
  1. PREVACID 24HR 15MG [Suspect]
     Indication: GASTROOESOPHAGEAL REFLUX DISEASE
     Dosage: 15 MG, QD
     Route: 048
     Dates: start: 2013
  2. PREVACID 24HR 15MG [Suspect]
     Indication: OFF LABEL USE
     Dosage: 30 MG, UNK
     Route: 048
  3. PREDNISONE [Concomitant]
     Dosage: UNK

REACTIONS (4)
  - Nervous system disorder [Not Recovered/Not Resolved]
  - Cough [Not Recovered/Not Resolved]
  - Incorrect drug administration duration [Unknown]
  - Drug ineffective [Unknown]
